FAERS Safety Report 9031043 (Version 2)
Quarter: 2013Q1

REPORT INFORMATION
  Report Type: Spontaneous
  Country: JP (occurrence: JP)
  Receive Date: 20130123
  Receipt Date: 20130215
  Transmission Date: 20140127
  Serious: Yes (Other)
  Sender: FDA-Public Use
  Company Number: JP-PFIZER INC-2013028545

PATIENT
  Age: 75 Year
  Sex: Female
  Weight: 38 kg

DRUGS (12)
  1. LYRICA [Suspect]
     Indication: PAIN IN EXTREMITY
     Dosage: 75 MG, 2X/DAY
     Route: 048
     Dates: start: 20130115
  2. LYRICA [Suspect]
     Indication: HYPOAESTHESIA
  3. LYRICA [Suspect]
     Indication: ANALGESIC THERAPY
  4. LOXONIN [Concomitant]
     Indication: ANALGESIC THERAPY
     Dosage: 60 MG, 2X/DAY
     Route: 048
     Dates: start: 20110113
  5. MUCOSTA [Concomitant]
     Indication: ANALGESIC THERAPY
     Dosage: 100 MG, 2X/DAY
     Route: 048
     Dates: start: 20110113
  6. GLAKAY [Concomitant]
     Indication: OSTEOPOROSIS
     Dosage: 15 MG, 3X/DAY
     Route: 048
     Dates: start: 20110113
  7. TAKEPRON [Concomitant]
     Indication: PROPHYLAXIS
     Dosage: 15 MG, 1X/DAY
     Route: 048
     Dates: start: 20110902
  8. NEUROTROPIN [Concomitant]
     Indication: ANALGESIC THERAPY
     Dosage: 8 IU, 2X/DAY
     Route: 048
     Dates: start: 20121219
  9. AZULFIDINE [Concomitant]
     Indication: RHEUMATOID ARTHRITIS
     Dosage: 500 MG, 2X/DAY
     Route: 048
     Dates: start: 20120615
  10. OPALMON [Concomitant]
     Indication: LUMBAR SPINAL STENOSIS
     Dosage: 5 UG, 3X/DAY
     Route: 048
     Dates: start: 20130111
  11. PALUX [Concomitant]
     Indication: LUMBAR SPINAL STENOSIS
     Dosage: UNK
     Route: 042
     Dates: start: 20130111, end: 20130124
  12. NEUROTROPIN [Concomitant]
     Indication: LUMBAR SPINAL STENOSIS
     Dosage: UNK
     Route: 042
     Dates: start: 20130111, end: 20130124

REACTIONS (2)
  - Deafness [Recovering/Resolving]
  - Dizziness [Recovering/Resolving]
